FAERS Safety Report 11636079 (Version 1)
Quarter: 2015Q4

REPORT INFORMATION
  Report Type: Spontaneous
  Country: US (occurrence: None)
  Receive Date: 20151015
  Receipt Date: 20151015
  Transmission Date: 20160304
  Serious: Yes (Other)
  Sender: FDA-Public Use
  Company Number: None

PATIENT
  Age: 27 Year
  Sex: Male
  Weight: 95.26 kg

DRUGS (1)
  1. ZICAM NOS [Suspect]
     Active Substance: ACETAMINOPHEN\CHLORPHENIRAMINE MALEATE\DEXTROMETHORPHAN HYDROBROMIDE\PHENYLEPHRINE HYDROCHLORIDE OR ACETAMINOPHEN\DEXTROMETHORPHAN HYDROBROMIDE\DOXYLAMINE SUCCINATE\PHENYLEPHRINE HYDROCHLORIDE
     Indication: NASAL CONGESTION

REACTIONS (7)
  - Eye irritation [None]
  - Lacrimation decreased [None]
  - Ageusia [None]
  - Nasal discomfort [None]
  - Anosmia [None]
  - Dry eye [None]
  - Burning sensation [None]

NARRATIVE: CASE EVENT DATE: 20150912
